FAERS Safety Report 16751178 (Version 2)
Quarter: 2019Q4

REPORT INFORMATION
  Report Type: Spontaneous
  Country: US (occurrence: US)
  Receive Date: 20190828
  Receipt Date: 20191018
  Transmission Date: 20200122
  Serious: No
  Sender: FDA-Public Use
  Company Number: US-ASTRAZENECA-2019SF15260

PATIENT
  Sex: Female
  Weight: 69.9 kg

DRUGS (2)
  1. BYDUREON BCISE [Suspect]
     Active Substance: EXENATIDE
     Indication: TYPE 2 DIABETES MELLITUS
     Dosage: ONCE A WEEK
     Route: 058
  2. BYDUREON [Concomitant]
     Active Substance: EXENATIDE

REACTIONS (5)
  - Wrong technique in device usage process [Unknown]
  - Needle issue [Unknown]
  - Injection site haemorrhage [Unknown]
  - Device leakage [Unknown]
  - Injection site mass [Unknown]
